FAERS Safety Report 11571360 (Version 5)
Quarter: 2018Q4

REPORT INFORMATION
  Report Type: Spontaneous
  Country: US (occurrence: US)
  Receive Date: 20150929
  Receipt Date: 20181005
  Transmission Date: 20190204
  Serious: Yes (Hospitalization, Other)
  Sender: FDA-Public Use
  Company Number: US-SA-2015SA090267

PATIENT
  Age: 52 Year
  Sex: Female

DRUGS (14)
  1. ESCITALOPRAM [Concomitant]
     Active Substance: ESCITALOPRAM OXALATE
  2. CLONAZEPAM. [Concomitant]
     Active Substance: CLONAZEPAM
  3. DIAZEPAM. [Concomitant]
     Active Substance: DIAZEPAM
  4. ACETAMINOPHEN;HYDROCODONE [Concomitant]
  5. MIRTAZAPINE. [Concomitant]
     Active Substance: MIRTAZAPINE
  6. AUBAGIO [Suspect]
     Active Substance: TERIFLUNOMIDE
     Indication: MULTIPLE SCLEROSIS
     Dosage: 14 MG,QD
     Route: 048
     Dates: start: 20140816
  7. SHINGRIX [Concomitant]
     Active Substance: RECOMBINANT VARICELLA ZOSTER VIRUS (VZV) GLYCOPROTEIN E
  8. XIIDRA [Concomitant]
     Active Substance: LIFITEGRAST
  9. SIMVASTATIN. [Concomitant]
     Active Substance: SIMVASTATIN
  10. RESTASIS [Concomitant]
     Active Substance: CYCLOSPORINE
  11. ATENOLOL. [Concomitant]
     Active Substance: ATENOLOL
  12. ROPINIROL [ROPINIROLE] [Concomitant]
  13. HUMALOG [Concomitant]
     Active Substance: INSULIN LISPRO
  14. ENALAPRIL MALEATE. [Concomitant]
     Active Substance: ENALAPRIL MALEATE

REACTIONS (3)
  - Scab [Unknown]
  - Hip surgery [Unknown]
  - Fall [Unknown]

NARRATIVE: CASE EVENT DATE: 20150613
